FAERS Safety Report 16812622 (Version 1)
Quarter: 2019Q3

REPORT INFORMATION
  Report Type: Spontaneous
  Country: US (occurrence: US)
  Receive Date: 20190916
  Receipt Date: 20190916
  Transmission Date: 20191005
  Serious: Yes (Other)
  Sender: FDA-Public Use
  Company Number: PHEH2019US037702

PATIENT

DRUGS (1)
  1. AFINITOR [Suspect]
     Active Substance: EVEROLIMUS
     Indication: ENDOMETRIAL CANCER METASTATIC
     Route: 065

REACTIONS (2)
  - Endometrial cancer recurrent [Unknown]
  - Product use in unapproved indication [Unknown]
